FAERS Safety Report 18196928 (Version 3)
Quarter: 2021Q1

REPORT INFORMATION
  Report Type: Other
  Country: US (occurrence: US)
  Receive Date: 20200826
  Receipt Date: 20210315
  Transmission Date: 20210419
  Serious: Yes (Hospitalization, Other)
  Sender: FDA-Public Use
  Company Number: US-ROCHE-2334961

PATIENT
  Sex: Female
  Weight: 86.26 kg

DRUGS (30)
  1. OCREVUS [Suspect]
     Active Substance: OCRELIZUMAB
     Route: 042
     Dates: start: 20180413, end: 2019
  2. NITROGLYCERIN. [Concomitant]
     Active Substance: NITROGLYCERIN
  3. PROTONIX [Concomitant]
     Active Substance: PANTOPRAZOLE SODIUM
  4. INSULIN [Concomitant]
     Active Substance: INSULIN NOS
  5. IMDUR [Concomitant]
     Active Substance: ISOSORBIDE MONONITRATE
     Dosage: OUR TABLET; ONGOING YES
  6. BREO ELLIPTA [Concomitant]
     Active Substance: FLUTICASONE FUROATE\VILANTEROL TRIFENATATE
     Indication: ASTHMA
     Dosage: 1 PUMP; ONGOING YES
  7. DIPHENHYDRAMINE. [Concomitant]
     Active Substance: DIPHENHYDRAMINE
     Indication: SLEEP DISORDER
     Dosage: NIGHTLY; ONGOING: YES
  8. HYDROXYZINE [Concomitant]
     Active Substance: HYDROXYZINE HYDROCHLORIDE
     Indication: PAIN
  9. MYRBETRIQ [Concomitant]
     Active Substance: MIRABEGRON
     Route: 048
  10. NEURONTIN [Concomitant]
     Active Substance: GABAPENTIN
     Indication: NEURALGIA
  11. FLEXERIL [Concomitant]
     Active Substance: CYCLOBENZAPRINE HYDROCHLORIDE
     Indication: MUSCLE SPASMS
     Route: 048
  12. CARVEDILOL. [Concomitant]
     Active Substance: CARVEDILOL
     Indication: HYPERTENSION
  13. HYDROXYZINE [Concomitant]
     Active Substance: HYDROXYZINE HYDROCHLORIDE
     Indication: ANXIETY
  14. SODIUM BICARBONATE. [Concomitant]
     Active Substance: SODIUM BICARBONATE
  15. TOPAMAX [Concomitant]
     Active Substance: TOPIRAMATE
     Indication: MIGRAINE
     Route: 048
  16. LACTOBACILLUS [Concomitant]
     Active Substance: LACTOBACILLUS ACIDOPHILUS
     Dosage: CULTURAL 10 BILLION CELL CAPSULE; ONGOING YES
     Route: 048
  17. INSULIN [Concomitant]
     Active Substance: INSULIN NOS
     Indication: DIABETES MELLITUS
  18. OCREVUS [Suspect]
     Active Substance: OCRELIZUMAB
     Route: 065
     Dates: start: 20180413
  19. HUMALOG [Concomitant]
     Active Substance: INSULIN LISPRO
     Indication: DIABETES MELLITUS
     Dosage: SLIDING SCALE DOSAGE, WITH MEALS
  20. CLARITINE [Concomitant]
     Active Substance: LORATADINE
     Indication: HYPERSENSITIVITY
     Route: 048
  21. SINGULAIR [Concomitant]
     Active Substance: MONTELUKAST SODIUM
     Indication: ASTHMA
     Dosage: AT BEDTIME
  22. HIPREX [METHENAMINE HIPPURATE] [Concomitant]
     Route: 048
  23. VITAMIN C [Concomitant]
     Active Substance: ASCORBIC ACID
  24. OCREVUS [Suspect]
     Active Substance: OCRELIZUMAB
     Indication: RELAPSING MULTIPLE SCLEROSIS
     Route: 042
     Dates: start: 201704
  25. FLONASE [Concomitant]
     Active Substance: FLUTICASONE PROPIONATE
  26. KEPPRA [Concomitant]
     Active Substance: LEVETIRACETAM
     Indication: SEIZURE
  27. OCREVUS [Suspect]
     Active Substance: OCRELIZUMAB
     Indication: RELAPSING-REMITTING MULTIPLE SCLEROSIS
     Dosage: DATE OF TREATMENT : 13/APR/2018, 05/NOV/2018, 03/MAY/2018 AND 27/JUN/2019?INITIAL 300 MG ONCE IN 2 W
     Route: 042
     Dates: start: 201901
  28. CRANBERRY EXTRACT [Concomitant]
     Active Substance: CRANBERRY
     Indication: URINARY TRACT INFECTION
     Dosage: CULTURAL 10 BILLION CELL CAPSULE; ONGOING YES
     Route: 048
  29. HYDROXYZINE [Concomitant]
     Active Substance: HYDROXYZINE HYDROCHLORIDE
     Indication: DIZZINESS
     Route: 048
  30. LANTUS [Concomitant]
     Active Substance: INSULIN GLARGINE

REACTIONS (11)
  - Multiple sclerosis relapse [Recovered/Resolved]
  - Urinary tract infection [Not Recovered/Not Resolved]
  - Coma [Recovered/Resolved]
  - Tremor [Not Recovered/Not Resolved]
  - Loss of consciousness [Recovered/Resolved]
  - Gallbladder disorder [Unknown]
  - Pneumonia [Recovered/Resolved]
  - Influenza [Recovered/Resolved]
  - Balance disorder [Not Recovered/Not Resolved]
  - Cardiac disorder [Recovered/Resolved]
  - Cardiac disorder [Unknown]

NARRATIVE: CASE EVENT DATE: 2018
